FAERS Safety Report 5005910-2 (Version None)
Quarter: 2006Q2

REPORT INFORMATION
  Report Type: 
  Country: None (occurrence: None)
  Receive Date: 20060517
  Receipt Date: 20060517
  Transmission Date: 20061013
  Serious: Yes (Other)
  Sender: FDA-Public Use
  Company Number: None

PATIENT
  Age: 78 Year
  Sex: Male
  Weight: 77.5651 kg

DRUGS (4)
  1. FOSAMAX [Suspect]
     Indication: OSTEOPOROSIS
     Dosage: 70 MG Q WEEK PO
     Route: 048
  2. ASPIRIN [Concomitant]
  3. SENNOSIDE [Concomitant]
  4. CALCIUM GLUCONATE [Concomitant]

REACTIONS (2)
  - DYSKINESIA [None]
  - HYPOAESTHESIA [None]
